FAERS Safety Report 10500024 (Version 2)
Quarter: 2014Q4

REPORT INFORMATION
  Report Type: Spontaneous
  Country: US (occurrence: US)
  Receive Date: 20141006
  Receipt Date: 20141006
  Transmission Date: 20150528
  Serious: No
  Sender: FDA-Public Use
  Company Number: US-AMGEN INC.-USASP2014045826

PATIENT
  Age: 61 Year
  Sex: Female

DRUGS (6)
  1. ZOLOFT [Concomitant]
     Active Substance: SERTRALINE HYDROCHLORIDE
  2. BIOTIN [Concomitant]
     Active Substance: BIOTIN
  3. BLACK COHOSH                       /01456801/ [Concomitant]
  4. VITAMIN E                          /00110501/ [Concomitant]
  5. PROLIA [Suspect]
     Active Substance: DENOSUMAB
     Indication: OSTEOPOROSIS POSTMENOPAUSAL
     Route: 065
  6. ST JOHN^S WORT [Concomitant]
     Active Substance: ST. JOHN^S WORT

REACTIONS (1)
  - Back pain [Unknown]
